FAERS Safety Report 4910114-5 (Version None)
Quarter: 2006Q1

REPORT INFORMATION
  Report Type: 
  Country: None (occurrence: None)
  Receive Date: 20060209
  Receipt Date: 20060208
  Transmission Date: 20060701
  Serious: Yes (Life-Threatening, Hospitalization)
  Sender: FDA-Public Use
  Company Number: 218042

PATIENT
  Age: 52 Year
  Sex: Female

DRUGS (4)
  1. AVASTIN (BEVACIZUMAB) PWDR + SOLVENT , INFUSION SOLN, 100MG [Suspect]
     Indication: COLON CANCER
     Dates: start: 20050622
  2. FLUOROURACIL [Suspect]
     Indication: COLON CANCER
     Dates: start: 20050622
  3. OXALIPLATIN (OXALIPLATIN) [Suspect]
     Indication: COLON CANCER
     Dates: start: 20050622
  4. LEUCOVORIN CALCIUM [Suspect]
     Indication: COLON CANCER
     Dates: start: 20050622

REACTIONS (3)
  - METASTASES TO LIVER [None]
  - SEPSIS [None]
  - SMALL INTESTINAL OBSTRUCTION [None]
